FAERS Safety Report 12308804 (Version 1)
Quarter: 2016Q2

REPORT INFORMATION
  Report Type: Spontaneous
  Country: JP (occurrence: JP)
  Receive Date: 20160427
  Receipt Date: 20160427
  Transmission Date: 20160815
  Serious: Yes (Hospitalization)
  Sender: FDA-Public Use
  Company Number: JP-ROCHE-1747242

PATIENT
  Age: 78 Year
  Sex: Male

DRUGS (6)
  1. XELODA [Suspect]
     Active Substance: CAPECITABINE
     Indication: GASTRIC CANCER
     Dosage: 2 WEEKS ADMINISTRATION FOLLOWED BY 1 WEEK REST
     Route: 048
     Dates: start: 20151005
  2. XELODA [Suspect]
     Active Substance: CAPECITABINE
     Indication: GASTRIC CANCER
     Dosage: 2 WEEKS ADMINISTRATION FOLLOWED BY 1 WEEK REST
     Route: 048
     Dates: start: 20160215
  3. HERCEPTIN [Suspect]
     Active Substance: TRASTUZUMAB
     Indication: GASTRIC CANCER
     Route: 041
     Dates: start: 20151005, end: 20151005
  4. CISPLATIN. [Suspect]
     Active Substance: CISPLATIN
     Indication: GASTRIC CANCER
     Dosage: THE FRACTIONATION DOSE FREQUENCY IS UNCERTAIN. ?DOSE INTERVAL UNCERTAINTY
     Route: 041
  5. HERCEPTIN [Suspect]
     Active Substance: TRASTUZUMAB
     Indication: GASTRIC CANCER
     Route: 041
     Dates: start: 20151026
  6. CISPLATIN. [Suspect]
     Active Substance: CISPLATIN
     Indication: GASTRIC CANCER
     Dosage: THE FRACTIONATION DOSE FREQUENCY IS UNCERTAIN. ?DOSE INTERVAL UNCERTAINTY
     Route: 041
     Dates: start: 20160215

REACTIONS (3)
  - Neutrophil count decreased [Recovered/Resolved]
  - Epistaxis [Recovered/Resolved]
  - Platelet count decreased [Recovered/Resolved]

NARRATIVE: CASE EVENT DATE: 20160125
